FAERS Safety Report 13010302 (Version 1)
Quarter: 2016Q4

REPORT INFORMATION
  Report Type: Spontaneous
  Country: IT (occurrence: IT)
  Receive Date: 20161208
  Receipt Date: 20161208
  Transmission Date: 20170207
  Serious: Yes (Other)
  Sender: FDA-Public Use
  Company Number: IT-TEVA-718774ACC

PATIENT
  Age: 63 Year
  Sex: Female

DRUGS (1)
  1. IRINOTECAN [Suspect]
     Active Substance: IRINOTECAN
     Indication: COLON CANCER
     Route: 042
     Dates: start: 20160316, end: 20160316

REACTIONS (3)
  - Vomiting [Recovered/Resolved]
  - Chest discomfort [Recovered/Resolved]
  - Sense of oppression [Recovered/Resolved]

NARRATIVE: CASE EVENT DATE: 20160316
